FAERS Safety Report 9120516 (Version 1)
Quarter: 2013Q1

REPORT INFORMATION
  Report Type: Spontaneous
  Country: IT (occurrence: IT)
  Receive Date: 20130226
  Receipt Date: 20130226
  Transmission Date: 20140127
  Serious: Yes (Death)
  Sender: FDA-Public Use
  Company Number: IT-ROCHE-1194347

PATIENT
  Age: 69 Year
  Sex: Female

DRUGS (2)
  1. CAPECITABINE [Suspect]
     Indication: RECTAL CANCER METASTATIC
     Route: 048
     Dates: start: 20130116, end: 20130130
  2. GARDENAL [Concomitant]
     Route: 065

REACTIONS (7)
  - Anaemia [Fatal]
  - Diarrhoea [Fatal]
  - Mucosal inflammation [Fatal]
  - Neutropenia [Fatal]
  - Renal failure acute [Fatal]
  - Thrombocytopenia [Fatal]
  - Vomiting [Fatal]
